FAERS Safety Report 25341065 (Version 1)
Quarter: 2025Q2

REPORT INFORMATION
  Report Type: Spontaneous
  Country: FR (occurrence: FR)
  Receive Date: 20250521
  Receipt Date: 20250521
  Transmission Date: 20250717
  Serious: Yes (Other)
  Sender: EMD SERONO INC
  Company Number: FR-Merck Healthcare KGaA-2025024221

PATIENT
  Age: 37 Year
  Sex: Female

DRUGS (1)
  1. LEVOTHYROXINE [Suspect]
     Active Substance: LEVOTHYROXINE
     Indication: Hypothyroidism

REACTIONS (12)
  - Fatigue [Unknown]
  - Alopecia [Unknown]
  - Amnesia [Unknown]
  - Arthralgia [Unknown]
  - Weight increased [Unknown]
  - General physical health deterioration [Unknown]
  - Myalgia [Unknown]
  - Somnolence [Unknown]
  - Disturbance in attention [Unknown]
  - Pain [Unknown]
  - Loss of personal independence in daily activities [Unknown]
  - Headache [Unknown]
